FAERS Safety Report 6750066-9 (Version None)
Quarter: 2010Q2

REPORT INFORMATION
  Report Type: 
  Country: None (occurrence: None)
  Receive Date: 20100601
  Receipt Date: 20100520
  Transmission Date: 20101027
  Serious: Yes (Hospitalization, Other)
  Sender: FDA-Public Use
  Company Number: US-PFIZER INC-2010037941

PATIENT
  Sex: Female
  Weight: 68 kg

DRUGS (24)
  1. LYRICA [Suspect]
     Indication: PAIN
     Dosage: 200 MG, 3X/DAY
     Route: 048
     Dates: start: 20060101, end: 20100323
  2. LYRICA [Suspect]
  3. AMBIEN [Concomitant]
     Dosage: 10 MG, DAILY
  4. PROZAC [Concomitant]
     Dosage: 60 MG, DAILY
  5. ATIVAN [Concomitant]
     Dosage: 1 MG, UNK
  6. ESTRACE [Concomitant]
     Dosage: UNK
  7. CLONIDINE [Concomitant]
     Indication: HYPERTENSION
     Dosage: UNK
  8. FLEXERIL [Concomitant]
     Indication: CHEST PAIN
     Dosage: 10 MG, 3X/DAY
  9. FLEXERIL [Concomitant]
     Indication: ABDOMINAL PAIN UPPER
  10. PROMETHAZINE [Concomitant]
     Dosage: 25 MG, UNK
     Route: 030
  11. OMEPRAZOLE [Concomitant]
     Dosage: 20 MG, 2X/DAY
  12. FEXOFENADINE [Concomitant]
  13. HYOSCYAMINE SULFATE [Concomitant]
     Dosage: 0.125 MG, EVERY 4 HR
     Route: 060
  14. LIDODERM [Concomitant]
     Dosage: UNK
  15. PAMELOR [Concomitant]
     Dosage: 20 MG, DAILY
  16. RANITIDINE [Concomitant]
     Dosage: 150 MG, DAILY
  17. ULTRACET [Concomitant]
     Indication: PANCREATIC ENZYMES
     Dosage: 20 MG, DAILY
  18. METFORMIN [Concomitant]
     Dosage: UNK
  19. ROXICODONE [Concomitant]
     Dosage: 15 MG, 3X/DAY
  20. BUSPAR [Concomitant]
     Indication: ANXIETY
     Dosage: 10 MG, 3X/DAY
  21. REGLAN [Concomitant]
     Dosage: 5 MG, 4X/DAY
  22. NOVOLIN [Concomitant]
     Dosage: UNK
  23. MIRALAX [Concomitant]
     Indication: CONSTIPATION
     Dosage: UNK
  24. COLACE [Concomitant]
     Indication: CONSTIPATION
     Dosage: UNK

REACTIONS (3)
  - DIABETES MELLITUS [None]
  - PANCREATITIS [None]
  - WITHDRAWAL SYNDROME [None]
